FAERS Safety Report 9777986 (Version 2)
Quarter: 2014Q1

REPORT INFORMATION
  Report Type: Report from Study
  Country: DE (occurrence: DE)
  Receive Date: 20131223
  Receipt Date: 20140128
  Transmission Date: 20141002
  Serious: Yes (Hospitalization)
  Sender: FDA-Public Use
  Company Number: DE-ROCHE-1322659

PATIENT
  Age: 81 Year
  Sex: Female

DRUGS (10)
  1. RITUXIMAB [Suspect]
     Indication: RHEUMATOID ARTHRITIS
     Dosage: LAST DOSE ADMINISTRATION ON 05-MAR-2013
     Route: 065
     Dates: start: 20120314
  2. AZOPT [Concomitant]
     Route: 065
  3. CALCILAC (GERMANY) [Concomitant]
  4. CARMEN (GERMANY) [Concomitant]
  5. CODIOVAN [Concomitant]
  6. PARACODEINE [Concomitant]
  7. SPIRIVA [Concomitant]
  8. LEVOFLOXACIN [Concomitant]
  9. XARELTO [Concomitant]
  10. VIANI [Concomitant]

REACTIONS (3)
  - Atrial fibrillation [Recovered/Resolved]
  - Chronic obstructive pulmonary disease [Unknown]
  - Pulmonary mass [Unknown]
